FAERS Safety Report 7107395-9 (Version None)
Quarter: 2010Q4

REPORT INFORMATION
  Report Type: 
  Country: None (occurrence: None)
  Receive Date: 20101111
  Receipt Date: 20101111
  Transmission Date: 20110411
  Serious: Yes (Other)
  Sender: FDA-Public Use
  Company Number: None

PATIENT
  Sex: Female
  Weight: 49.8957 kg

DRUGS (1)
  1. DOXORUBICIN HCL [Suspect]
     Dosage: IV
     Route: 042

REACTIONS (7)
  - CHEST DISCOMFORT [None]
  - CHEST PAIN [None]
  - EAR DISCOMFORT [None]
  - ELECTROCARDIOGRAM T WAVE INVERSION [None]
  - PRURITUS [None]
  - THROAT IRRITATION [None]
  - THROAT TIGHTNESS [None]
